FAERS Safety Report 22976719 (Version 4)
Quarter: 2023Q4

REPORT INFORMATION
  Report Type: Spontaneous
  Country: JP (occurrence: JP)
  Receive Date: 20230925
  Receipt Date: 20231205
  Transmission Date: 20240110
  Serious: Yes (Hospitalization, Other)
  Sender: FDA-Public Use
  Company Number: JP-GLAXOSMITHKLINE-JP2023JPN128484

PATIENT

DRUGS (17)
  1. DAPRODUSTAT [Suspect]
     Active Substance: DAPRODUSTAT
     Indication: Nephrogenic anaemia
     Dosage: 10 MG, QD
     Route: 048
     Dates: end: 20230709
  2. CILNIDIPINE [Concomitant]
     Active Substance: CILNIDIPINE
     Dosage: 2 DF, 1D, AFTER DINNER
  3. ATORVASTATIN CALCIUM [Concomitant]
     Active Substance: ATORVASTATIN CALCIUM
     Dosage: 10 MG, 1D, AFTER DINNER
  4. NALFURAFINE HYDROCHLORIDE OD [Concomitant]
     Dosage: 5 ?G, 1D, AFTER DINNER
  5. FEXOFENADINE HYDROCHLORIDE [Concomitant]
     Active Substance: FEXOFENADINE HYDROCHLORIDE
     Dosage: 60 MG, BID, AFTER BREAKFAST AND DINNER
  6. BISOPROLOL FUMARATE [Concomitant]
     Active Substance: BISOPROLOL FUMARATE
     Dosage: 2.5 MG, BID, AFTER BREAKFAST AND DINNER
  7. THEOPHYLLINE [Concomitant]
     Active Substance: THEOPHYLLINE
     Dosage: 200 MG, 1D, AFTER DINNER
  8. MIYA-BM [Concomitant]
     Active Substance: CLOSTRIDIUM BUTYRICUM SPORES STRAIN M-55
     Dosage: 1 DF, TID, AFTER BREAKFAST, LUNCH AND DINNER
  9. POLAPREZINC [Concomitant]
     Active Substance: POLAPREZINC
     Dosage: 75 MG, BID, AFTER BREAKFAST AND DINNER
  10. VONOPRAZAN FUMARATE [Concomitant]
     Active Substance: VONOPRAZAN FUMARATE
     Dosage: 10 MG, 1D, AFTER DINNER
  11. MENATETRENONE [Concomitant]
     Active Substance: MENATETRENONE
     Dosage: 15 MG, TID, AFTER BREAKFAST, LUNCH AND DINNER
  12. PREDONINE [Concomitant]
     Active Substance: PREDNISOLONE
     Dosage: 5 MG, 1D, AFTER BREAKFAST
  13. FURSULTIAMINE [Concomitant]
     Active Substance: FURSULTIAMINE
     Dosage: 25 MG, 1D, AFTER DINNER, TUE, THU. AND SAT.
  14. ROCALTROL [Concomitant]
     Active Substance: CALCITRIOL
     Dosage: 1 DF, 1D, AFTER DINNER, TUE, THU. AND SAT.
  15. ZOLPIDEM TARTRATE [Concomitant]
     Active Substance: ZOLPIDEM TARTRATE
     Dosage: 5 MG, 1D, BEFORE BED
  16. ATARAX [Concomitant]
     Active Substance: HYDROXYZINE HYDROCHLORIDE
     Dosage: 25 MG, 1D, BEFORE BED
  17. ASPIRIN [Concomitant]
     Active Substance: ASPIRIN
     Dosage: 100 MG, 1D, AFTER BREAKFAST

REACTIONS (6)
  - Cerebral infarction [Recovered/Resolved with Sequelae]
  - Hemiplegia [Unknown]
  - Dysarthria [Unknown]
  - Coagulopathy [Unknown]
  - Constipation [Unknown]
  - Pain [Unknown]

NARRATIVE: CASE EVENT DATE: 20230708
